FAERS Safety Report 8337213-2 (Version None)
Quarter: 2012Q2

REPORT INFORMATION
  Report Type: 
  Country: None (occurrence: None)
  Receive Date: 20120504
  Receipt Date: 20120430
  Transmission Date: 20120825
  Serious: Yes (Other)
  Sender: FDA-Public Use
  Company Number: US-PFIZER INC-2012060490

PATIENT
  Sex: Female

DRUGS (8)
  1. TOVIAZ [Suspect]
     Dosage: 4 MG, UNK
  2. SINGULAIR [Concomitant]
  3. CILOSTAZOL [Concomitant]
  4. IPRATROPIUM [Concomitant]
  5. BELLADONNA EXTRACT [Concomitant]
     Dosage: 1 TO 2 A DAY
  6. ALBUTEROL [Concomitant]
  7. LEVOTHYROXINE SODIUM [Concomitant]
  8. TOVIAZ [Suspect]
     Dosage: 8 MG, UNK

REACTIONS (9)
  - DRUG INEFFECTIVE [None]
  - ANGIOPATHY [None]
  - URINARY TRACT INFECTION [None]
  - MALAISE [None]
  - POLLAKIURIA [None]
  - ANIMAL BITE [None]
  - IMPAIRED HEALING [None]
  - FEELING ABNORMAL [None]
  - MIDDLE INSOMNIA [None]
